FAERS Safety Report 5581648-8 (Version None)
Quarter: 2008Q1

REPORT INFORMATION
  Report Type: 
  Country: None (occurrence: None)
  Receive Date: 20080102
  Receipt Date: 20080102
  Transmission Date: 20080703
  Serious: Yes (Hospitalization)
  Sender: FDA-Public Use
  Company Number: None

PATIENT
  Age: 74 Year
  Sex: Male

DRUGS (1)
  1. RIFAMPIN [Suspect]
     Indication: ARTHRITIS INFECTIVE
     Dosage: 600MG  EVERY DAY IV
     Route: 042
     Dates: start: 20070917, end: 20070918

REACTIONS (1)
  - RENAL FAILURE ACUTE [None]
